FAERS Safety Report 8457099-5 (Version None)
Quarter: 2012Q2

REPORT INFORMATION
  Report Type: 
  Country: None (occurrence: None)
  Receive Date: 20120615
  Receipt Date: 20120601
  Transmission Date: 20120825
  Serious: Yes (Hospitalization, Other)
  Sender: FDA-Public Use
  Company Number: CIP11002926

PATIENT
  Age: 63 Year
  Sex: Female
  Weight: 75.9 kg

DRUGS (18)
  1. FLONASE [Concomitant]
  2. ROBAXIN [Concomitant]
  3. POTASSIUM GLUCONATE TAB [Concomitant]
  4. CYMBALTA [Concomitant]
  5. HYDROCHLOROTHIAZIDE [Concomitant]
  6. ACIPHEX [Concomitant]
  7. MAGNESIUM OXIDE (MAGNESIUM OXIDE) [Concomitant]
  8. BONIVA [Suspect]
     Indication: OSTEOPOROSIS
     Dosage: 150 MG MONTHLY
     Dates: start: 20081216, end: 20110101
  9. FLAXSEED OIL (LINUM USITATISSIMUM SEED OIL) [Concomitant]
  10. NICOTROL [Concomitant]
  11. MULTIVITAMIN D /00318501/ (COLECALCIFEROL) [Concomitant]
  12. ACTONEL [Suspect]
     Indication: OSTEOPOROSIS
     Dosage: 35 MG, 1/WEEK, ORAL
     Route: 048
     Dates: start: 20041111, end: 20081216
  13. FIORINAL /00090401/ (ACETYLSALICYLIC ACID, BUTALBITAL, CAFFEINE, PHENA [Concomitant]
  14. CLONAZEPAM [Concomitant]
  15. ZOLOFT [Concomitant]
  16. COMBIVENT [Concomitant]
  17. ASPIRIN [Concomitant]
  18. FISH OIL (FISH OIL) [Concomitant]

REACTIONS (3)
  - FEMUR FRACTURE [None]
  - STRESS FRACTURE [None]
  - PAIN IN EXTREMITY [None]
